FAERS Safety Report 4828802-8 (Version None)
Quarter: 2005Q4

REPORT INFORMATION
  Report Type: 
  Country: None (occurrence: None)
  Receive Date: 20051014
  Receipt Date: 20050621
  Transmission Date: 20060501
  Serious: No
  Sender: FDA-Public Use
  Company Number: 2005SP001349

PATIENT
  Age: 61 Year
  Sex: Male
  Weight: 136.0791 kg

DRUGS (7)
  1. LUNESTA [Suspect]
     Indication: INSOMNIA
     Dosage: 3 MG; HS; ORAL
     Route: 048
     Dates: start: 20050608
  2. CAPTOPRIL [Concomitant]
  3. WARFARIN [Concomitant]
  4. FUROSEMIDE [Concomitant]
  5. ALLOPURINOL [Concomitant]
  6. THEOPHYLLINE [Concomitant]
  7. KLOR-CON [Concomitant]

REACTIONS (3)
  - DYSGEUSIA [None]
  - HEADACHE [None]
  - INSOMNIA [None]
